FAERS Safety Report 24338593 (Version 1)
Quarter: 2024Q3

REPORT INFORMATION
  Report Type: Spontaneous
  Country: US (occurrence: None)
  Receive Date: 20240918
  Receipt Date: 20240918
  Transmission Date: 20241016
  Serious: Yes (Other)
  Sender: Public
  Company Number: None

PATIENT
  Age: 65 Year
  Sex: Male

DRUGS (1)
  1. CAPECITABINE [Suspect]
     Active Substance: CAPECITABINE
     Dosage: 1500 MG BID 14 DAYS ON, 7 DAYS OFF ORAL ?
     Route: 048
     Dates: start: 202403, end: 202408

REACTIONS (1)
  - Disease progression [None]

NARRATIVE: CASE EVENT DATE: 20240801
